FAERS Safety Report 14026477 (Version 8)
Quarter: 2018Q2

REPORT INFORMATION
  Report Type: Spontaneous
  Country: US (occurrence: US)
  Receive Date: 20170929
  Receipt Date: 20180426
  Transmission Date: 20180711
  Serious: Yes (Hospitalization, Other)
  Sender: FDA-Public Use
  Company Number: US-ACTELION-A-NJ2017-159773

PATIENT
  Age: 65 Year
  Sex: Female

DRUGS (6)
  1. VENTAVIS [Suspect]
     Active Substance: ILOPROST
     Dosage: 6 TIMES DAILY
     Route: 055
  2. SILDENAFIL. [Concomitant]
     Active Substance: SILDENAFIL
     Dosage: 20 MG, TID
  3. VENTAVIS [Suspect]
     Active Substance: ILOPROST
     Dosage: 5 MCG, Q3HRS
     Route: 055
  4. VENTAVIS [Suspect]
     Active Substance: ILOPROST
     Indication: PULMONARY ARTERIAL HYPERTENSION
     Dosage: 20 MCG/ML, 6 TIMES DAILY
     Route: 055
     Dates: start: 20121127
  5. OPSUMIT [Suspect]
     Active Substance: MACITENTAN
     Indication: PULMONARY ARTERIAL HYPERTENSION
     Dosage: 10 MG, QD
     Route: 048
     Dates: start: 20160831
  6. LISINOPRIL. [Concomitant]
     Active Substance: LISINOPRIL
     Dosage: 2.5 MG, QD

REACTIONS (16)
  - Biopsy bone marrow normal [Unknown]
  - Ear pain [Unknown]
  - Chest pain [Recovered/Resolved]
  - Pain [Unknown]
  - Headache [Unknown]
  - Malaise [Unknown]
  - Asthenia [Not Recovered/Not Resolved]
  - Hypotension [Recovered/Resolved]
  - Drug dose omission [Recovered/Resolved]
  - Platelet count decreased [Recovering/Resolving]
  - Inappropriate schedule of drug administration [Unknown]
  - Skin mass [Unknown]
  - Tinnitus [Not Recovered/Not Resolved]
  - Flatulence [Unknown]
  - Urinary tract infection [Unknown]
  - Dyspnoea [Unknown]

NARRATIVE: CASE EVENT DATE: 20171229
